FAERS Safety Report 17588068 (Version 2)
Quarter: 2020Q1

REPORT INFORMATION
  Report Type: Spontaneous
  Country: US (occurrence: US)
  Receive Date: 20200326
  Receipt Date: 20200330
  Transmission Date: 20200409
  Serious: Yes (Other)
  Sender: FDA-Public Use
  Company Number: US-GILEAD-2020-0456425

PATIENT
  Age: 75 Year
  Sex: Female
  Weight: 91.8 kg

DRUGS (1)
  1. YESCARTA [Suspect]
     Active Substance: AXICABTAGENE CILOLEUCEL
     Indication: DIFFUSE LARGE B-CELL LYMPHOMA
     Dosage: 68 ML, SINGLE DOSE
     Route: 042
     Dates: start: 20200210, end: 20200210

REACTIONS (8)
  - Cytokine release syndrome [Recovered/Resolved]
  - Neurotoxicity [Recovered/Resolved]
  - Electrocardiogram QT prolonged [Unknown]
  - Encephalopathy [Unknown]
  - Neurotoxicity [Recovered/Resolved]
  - Urinary tract infection enterococcal [Unknown]
  - Deep vein thrombosis [Unknown]
  - Pleural effusion [Unknown]

NARRATIVE: CASE EVENT DATE: 20200211
